FAERS Safety Report 4673242-8 (Version None)
Quarter: 2005Q2

REPORT INFORMATION
  Report Type: 
  Country: None (occurrence: None)
  Receive Date: 20050525
  Receipt Date: 20050517
  Transmission Date: 20051028
  Serious: Yes (Death, Life-Threatening)
  Sender: FDA-Public Use
  Company Number: 200511656FR

PATIENT
  Age: 71 Year
  Sex: Female

DRUGS (9)
  1. LOVENOX [Suspect]
     Route: 058
     Dates: start: 20050402, end: 20050403
  2. HEPARINE SODIQUE [Suspect]
     Route: 042
     Dates: start: 20050316, end: 20050401
  3. CIPROFLOXACIN [Concomitant]
     Route: 048
  4. ATARAX [Concomitant]
     Route: 048
     Dates: start: 20050323
  5. ROCEPHIN [Concomitant]
     Route: 042
     Dates: start: 20050325
  6. SILOMAT [Concomitant]
     Dosage: DOSE UNIT: UNITS
     Route: 048
     Dates: start: 20050327
  7. STILNOX [Concomitant]
  8. FUNGIZONE [Concomitant]
     Dosage: DOSE UNIT: UNITS
     Route: 048
  9. QUESTRAN [Concomitant]
     Dosage: DOSE UNIT: UNITS

REACTIONS (3)
  - HEPATIC NEOPLASM MALIGNANT [None]
  - PULMONARY EMBOLISM [None]
  - THROMBOCYTOPENIA [None]
